FAERS Safety Report 17210403 (Version 1)
Quarter: 2019Q4

REPORT INFORMATION
  Report Type: Spontaneous
  Country: NO (occurrence: NO)
  Receive Date: 20191227
  Receipt Date: 20191227
  Transmission Date: 20200122
  Serious: Yes (Hospitalization, Other)
  Sender: FDA-Public Use
  Company Number: NO-ELI_LILLY_AND_COMPANY-NO201912010834

PATIENT
  Age: 9 Month
  Sex: Male

DRUGS (2)
  1. ZYPADHERA [Suspect]
     Active Substance: OLANZAPINE PAMOATE
     Indication: SCHIZOPHRENIA
     Dosage: 405 MG
     Route: 030
     Dates: start: 201811
  2. ORFIRIL [Concomitant]
     Active Substance: VALPROATE SODIUM
     Dosage: 1500 MG DAILY
     Route: 048
     Dates: start: 201609

REACTIONS (2)
  - Infusion related reaction [Recovered/Resolved]
  - Urinary retention [Recovered/Resolved]
